FAERS Safety Report 5891980-6 (Version None)
Quarter: 2008Q3

REPORT INFORMATION
  Report Type: 
  Country: None (occurrence: None)
  Receive Date: 20080908
  Receipt Date: 20080714
  Transmission Date: 20090109
  Serious: No
  Sender: FDA-Public Use
  Company Number: 002#1#2008-00580

PATIENT
  Age: 64 Year
  Sex: Male

DRUGS (2)
  1. NEUPRO [Suspect]
     Indication: PARKINSON'S DISEASE
     Dosage: 6MG/24H, 1 IN 1 D, TRANSDERMAL : MG/24H, 1 IN 1 D, TRANSDERMAL
     Route: 062
  2. SELEGILINE HCL [Concomitant]

REACTIONS (1)
  - UNEVALUABLE EVENT [None]
